FAERS Safety Report 11036696 (Version 1)
Quarter: 2015Q2

REPORT INFORMATION
  Report Type: Report from Study
  Country: CN (occurrence: CN)
  Receive Date: 20150416
  Receipt Date: 20150416
  Transmission Date: 20150821
  Serious: Yes (Other)
  Sender: FDA-Public Use
  Company Number: CN-ROCHE-1547704

PATIENT

DRUGS (6)
  1. OXALIPLATIN. [Suspect]
     Active Substance: OXALIPLATIN
     Indication: COLORECTAL CANCER METASTATIC
     Route: 041
  2. IRINOTECAN [Suspect]
     Active Substance: IRINOTECAN
     Indication: COLORECTAL CANCER METASTATIC
     Dosage: 90 MIN, 1ST DAY
     Route: 041
  3. 5-FLUOROURACIL [Suspect]
     Active Substance: FLUOROURACIL
     Indication: COLORECTAL CANCER METASTATIC
     Route: 042
  4. BEVACIZUMAB [Suspect]
     Active Substance: BEVACIZUMAB
     Indication: COLORECTAL CANCER METASTATIC
     Route: 041
  5. CAPECITABINE. [Suspect]
     Active Substance: CAPECITABINE
     Indication: COLORECTAL CANCER METASTATIC
     Dosage: DAY 1 THROUGH DAY 14
     Route: 048
  6. LEUCOVORIN [Suspect]
     Active Substance: LEUCOVORIN
     Indication: COLORECTAL CANCER METASTATIC
     Dosage: INTRAVENOUS DRIP 2 HOURS, 1ST DAY
     Route: 041

REACTIONS (15)
  - Venous thrombosis [Unknown]
  - Haemorrhoidal haemorrhage [Unknown]
  - Neuropathy peripheral [Unknown]
  - Vomiting [Unknown]
  - Gastrointestinal perforation [Unknown]
  - Proteinuria [Unknown]
  - Febrile neutropenia [Unknown]
  - Epistaxis [Unknown]
  - Menorrhagia [Unknown]
  - Hepatic function abnormal [Unknown]
  - Hypertension [Unknown]
  - Leukopenia [Unknown]
  - Nausea [Unknown]
  - Diarrhoea [Unknown]
  - Palmar-plantar erythrodysaesthesia syndrome [Unknown]
